FAERS Safety Report 8345001-6 (Version None)
Quarter: 2012Q2

REPORT INFORMATION
  Report Type: 
  Country: None (occurrence: None)
  Receive Date: 20120508
  Receipt Date: 20100605
  Transmission Date: 20120825
  Serious: Yes (Other)
  Sender: FDA-Public Use
  Company Number: US-TEVA-2010003084

PATIENT
  Sex: Female

DRUGS (1)
  1. TRISENOX [Suspect]
     Route: 041

REACTIONS (3)
  - DYSPNOEA [None]
  - OLIGURIA [None]
  - RASH [None]
